FAERS Safety Report 13667699 (Version 2)
Quarter: 2017Q3

REPORT INFORMATION
  Report Type: Spontaneous
  Country: US (occurrence: US)
  Receive Date: 20170620
  Receipt Date: 20170724
  Transmission Date: 20171127
  Serious: Yes (Other)
  Sender: FDA-Public Use
  Company Number: US-BRISTOL-MYERS SQUIBB COMPANY-BMS-2017-054232

PATIENT
  Sex: Female

DRUGS (1)
  1. ABILIFY [Suspect]
     Active Substance: ARIPIPRAZOLE
     Indication: MAJOR DEPRESSION
     Dosage: UNK
     Route: 065
     Dates: start: 20080905, end: 20160117

REACTIONS (8)
  - Compulsive sexual behaviour [Recovered/Resolved]
  - Compulsive shopping [Recovered/Resolved]
  - Suicide attempt [Recovered/Resolved]
  - Gambling [Recovered/Resolved]
  - Obsessive-compulsive disorder [Unknown]
  - Suicidal ideation [Recovered/Resolved]
  - Binge eating [Recovered/Resolved]
  - Overdose [Unknown]
